APPROVED DRUG PRODUCT: EPIRUBICIN HYDROCHLORIDE
Active Ingredient: EPIRUBICIN HYDROCHLORIDE
Strength: 50MG/25ML (2MG/ML)
Dosage Form/Route: INJECTABLE;INJECTION
Application: A065445 | Product #002
Applicant: ACTAVIS TOTOWA LLC
Approved: Sep 18, 2008 | RLD: No | RS: No | Type: DISCN